FAERS Safety Report 8385250 (Version 2)
Quarter: 2015Q2

REPORT INFORMATION
  Report Type: Report from Study
  Country: US (occurrence: US)
  Receive Date: 20120202
  Receipt Date: 20150616
  Transmission Date: 20150821
  Serious: Yes (Death)
  Sender: FDA-Public Use
  Company Number: US-ROCHE-1035772

PATIENT
  Sex: Female
  Weight: 60.84 kg

DRUGS (8)
  1. ALOXI [Concomitant]
     Active Substance: PALONOSETRON HYDROCHLORIDE
     Route: 042
     Dates: start: 20070205, end: 20070409
  2. AVASTIN [Suspect]
     Active Substance: BEVACIZUMAB
     Indication: BREAST CANCER FEMALE
     Route: 048
     Dates: start: 20060601
  3. ATIVAN [Concomitant]
     Active Substance: LORAZEPAM
     Route: 042
     Dates: start: 20070205, end: 20070402
  4. DECADRON [Concomitant]
     Active Substance: DEXAMETHASONE
     Route: 042
     Dates: start: 20070205, end: 20070209
  5. TAGAMET [Concomitant]
     Active Substance: CIMETIDINE
     Route: 048
     Dates: start: 20070205, end: 20070409
  6. TAXOL [Concomitant]
     Active Substance: PACLITAXEL
     Dosage: 60 AND 40
     Route: 042
     Dates: start: 20070205, end: 20070409
  7. NEULASTA [Concomitant]
     Active Substance: PEGFILGRASTIM
     Route: 058
  8. BENADRYL [Concomitant]
     Active Substance: DIPHENHYDRAMINE HYDROCHLORIDE
     Route: 042
     Dates: start: 20070205, end: 20070409

REACTIONS (2)
  - Off label use [Unknown]
  - Death [Fatal]
